FAERS Safety Report 23533581 (Version 1)
Quarter: 2024Q1

REPORT INFORMATION
  Report Type: Spontaneous
  Country: JP (occurrence: JP)
  Receive Date: 20240216
  Receipt Date: 20240216
  Transmission Date: 20240410
  Serious: Yes (Hospitalization)
  Sender: FDA-Public Use
  Company Number: JP-ABBVIE-5642607

PATIENT
  Age: 51 Year
  Sex: Female

DRUGS (5)
  1. MESALAMINE [Suspect]
     Active Substance: MESALAMINE
     Indication: Colitis ulcerative
     Dosage: 2400 MILLIGRAM
     Route: 048
     Dates: start: 202205
  2. URSODIOL [Suspect]
     Active Substance: URSODIOL
     Indication: Drug-induced liver injury
     Route: 048
  3. URSODIOL [Suspect]
     Active Substance: URSODIOL
     Indication: Drug-induced liver injury
     Route: 048
  4. BUDESONIDE [Concomitant]
     Active Substance: BUDESONIDE
     Indication: Colitis ulcerative
     Route: 061
  5. BUDESONIDE [Concomitant]
     Active Substance: BUDESONIDE
     Indication: Colitis ulcerative
     Route: 061

REACTIONS (2)
  - Drug-induced liver injury [Recovering/Resolving]
  - Off label use [Unknown]
